FAERS Safety Report 21726293 (Version 2)
Quarter: 2022Q4

REPORT INFORMATION
  Report Type: Spontaneous
  Country: US (occurrence: US)
  Receive Date: 20221214
  Receipt Date: 20221228
  Transmission Date: 20230113
  Serious: No
  Sender: FDA-Public Use
  Company Number: US-ALK-ABELLO A/S-2022AA004089

PATIENT

DRUGS (7)
  1. ALLERGENIC EXTRACT- PEANUT ARACHIS HYPOGAEA [Suspect]
     Active Substance: ALLERGENIC EXTRACT- PEANUT ARACHIS HYPOGAEA
     Indication: Diagnostic procedure
     Dosage: UNK
     Dates: start: 20221006
  2. ALLERGENIC EXTRACTS [Suspect]
     Active Substance: ALLERGENIC EXTRACTS
     Indication: Diagnostic procedure
     Dosage: UNK
     Dates: start: 20221006
  3. WHEAT GRAIN [Suspect]
     Active Substance: WHEAT
     Indication: Diagnostic procedure
     Dosage: UNK
     Dates: start: 20221006
  4. ALLERGENIC EXTRACTS [Suspect]
     Active Substance: ALLERGENIC EXTRACTS
     Indication: Diagnostic procedure
     Dosage: UNK
     Dates: start: 20221006
  5. EGG WHITE [Suspect]
     Active Substance: EGG WHITE
     Indication: Diagnostic procedure
     Dosage: UNK
     Dates: start: 20221006
  6. ALLERGENIC EXTRACTS [Suspect]
     Active Substance: ALLERGENIC EXTRACTS
     Indication: Diagnostic procedure
     Dosage: UNK
     Dates: start: 20221006
  7. GREEN PEA [Suspect]
     Active Substance: PEA
     Indication: Diagnostic procedure
     Dosage: UNK
     Dates: start: 20221006

REACTIONS (1)
  - False negative investigation result [Unknown]

NARRATIVE: CASE EVENT DATE: 20221006
